FAERS Safety Report 5218419-8 (Version None)
Quarter: 2007Q1

REPORT INFORMATION
  Report Type: 
  Country: None (occurrence: None)
  Receive Date: 20061201
  Receipt Date: 20060630
  Transmission Date: 20070707
  Serious: Yes (Other)
  Sender: FDA-Public Use
  Company Number: PHEH2006US08409

PATIENT
  Age: 56 Year
  Sex: Male
  Weight: 86.2 kg

DRUGS (2)
  1. LAMISIL [Suspect]
     Indication: NAIL TINEA
     Dosage: 250 MG, QD, ORAL
     Route: 048
     Dates: start: 20060228, end: 20060422
  2. PRILOSEC [Concomitant]

REACTIONS (9)
  - CHILLS [None]
  - DIARRHOEA [None]
  - FATIGUE [None]
  - MYALGIA [None]
  - NAUSEA [None]
  - NEUTROPENIA [None]
  - NEUTROPHIL PERCENTAGE DECREASED [None]
  - PYREXIA [None]
  - WHITE BLOOD CELL COUNT DECREASED [None]
